FAERS Safety Report 9569449 (Version 2)
Quarter: 2013Q3

REPORT INFORMATION
  Report Type: Spontaneous
  Country: US (occurrence: US)
  Receive Date: 20130930
  Receipt Date: 20130930
  Transmission Date: 20140515
  Serious: Yes (Other)
  Sender: FDA-Public Use
  Company Number: US-AMGEN-USASP2013043269

PATIENT
  Age: 28 Year
  Sex: Female

DRUGS (1)
  1. ENBREL [Suspect]
     Indication: PSORIATIC ARTHROPATHY
     Dosage: 50 MG, QWK
     Route: 065
     Dates: start: 20120920, end: 20130525

REACTIONS (5)
  - Bone abscess [Recovered/Resolved]
  - Staphylococcal sepsis [Not Recovered/Not Resolved]
  - Staphylococcal abscess [Recovered/Resolved]
  - Arthropod bite [Recovered/Resolved]
  - Wound infection staphylococcal [Recovered/Resolved]
